FAERS Safety Report 8484704-X (Version None)
Quarter: 2012Q3

REPORT INFORMATION
  Report Type: 
  Country: None (occurrence: None)
  Receive Date: 20120703
  Receipt Date: 20120507
  Transmission Date: 20120928
  Serious: No
  Sender: FDA-Public Use
  Company Number: US-TEVA-337207USA

PATIENT
  Sex: Male
  Weight: 129.39 kg

DRUGS (2)
  1. DIOVAN HCT [Concomitant]
     Indication: HYPERTENSION
     Dosage: 160/12.5
     Route: 048
  2. NUVIGIL [Suspect]
     Indication: SLEEP APNOEA SYNDROME
     Dosage: 150 MILLIGRAM;
     Route: 048
     Dates: start: 20120301, end: 20120401

REACTIONS (2)
  - INSOMNIA [None]
  - DIZZINESS [None]
